FAERS Safety Report 25857063 (Version 1)
Quarter: 2025Q3

REPORT INFORMATION
  Report Type: Spontaneous
  Country: JP (occurrence: JP)
  Receive Date: 20250929
  Receipt Date: 20250929
  Transmission Date: 20251021
  Serious: Yes (Death, Other)
  Sender: MERCK SHARP & DOHME LLC
  Company Number: JP-009507513-2333381

PATIENT
  Age: 77 Year
  Sex: Male

DRUGS (1)
  1. KEYTRUDA [Suspect]
     Active Substance: PEMBROLIZUMAB
     Indication: Bladder cancer
     Route: 065

REACTIONS (6)
  - Myocarditis [Fatal]
  - Cardiac failure [Unknown]
  - Ventricular tachycardia [Unknown]
  - Atrioventricular block complete [Unknown]
  - Sinus node dysfunction [Unknown]
  - Immune-mediated myositis [Unknown]
